FAERS Safety Report 20006169 (Version 1)
Quarter: 2021Q4

REPORT INFORMATION
  Report Type: Spontaneous
  Country: US (occurrence: US)
  Receive Date: 20211028
  Receipt Date: 20211028
  Transmission Date: 20220304
  Serious: No
  Sender: FDA-Public Use
  Company Number: 2021A785645

PATIENT
  Age: 4219 Week
  Sex: Male

DRUGS (19)
  1. DALIRESP [Suspect]
     Active Substance: ROFLUMILAST
     Dosage: 500.0UG UNKNOWN
     Route: 048
  2. METOPROLOL TARTRATE [Suspect]
     Active Substance: METOPROLOL TARTRATE
     Dosage: TABLET
     Route: 048
  3. ENZALUTAMIDE [Suspect]
     Active Substance: ENZALUTAMIDE
     Indication: Metastasis
     Dosage: 2 TABLETS OF 40 MG
     Route: 048
     Dates: start: 20210818
  4. ENZALUTAMIDE [Suspect]
     Active Substance: ENZALUTAMIDE
     Indication: Bone cancer
     Dosage: 2 TABLETS OF 40 MG
     Route: 048
     Dates: start: 20210818
  5. ACTOS [Concomitant]
     Active Substance: PIOGLITAZONE HYDROCHLORIDE
     Dosage: TABLET
  6. ALLOPURINOL [Concomitant]
     Active Substance: ALLOPURINOL
     Dosage: TABLET
  7. ASPIRIN [Concomitant]
     Active Substance: ASPIRIN
     Dosage: TABLET
  8. GLIPIZIDE [Concomitant]
     Active Substance: GLIPIZIDE
     Dosage: TABLET, EXTENDED RELEASE
  9. JANUVIA [Concomitant]
     Active Substance: SITAGLIPTIN PHOSPHATE
     Dosage: TABLET
  10. LOSARTAN POTASSIUM [Concomitant]
     Active Substance: LOSARTAN POTASSIUM
     Dosage: TABLET
  11. METFORMIN HYDROCHLORIDE [Concomitant]
     Active Substance: METFORMIN HYDROCHLORIDE
     Dosage: TABLET
  12. PRAVASTATIN [Concomitant]
     Active Substance: PRAVASTATIN
     Dosage: TABLETS
  13. TRIAMTERENE [Concomitant]
     Active Substance: TRIAMTERENE
     Dosage: TABLET
  14. VITAMIN D [Concomitant]
     Active Substance: VITAMIN D NOS
     Dosage: CAPSULE
  15. VITAMIN E [Concomitant]
     Active Substance: .ALPHA.-TOCOPHEROL
     Dosage: CAPSULE
  16. TRELEGY ELLIPTA [Concomitant]
     Active Substance: FLUTICASONE FUROATE\UMECLIDINIUM BROMIDE\VILANTEROL TRIFENATATE
  17. CLOPIDOGREL [Concomitant]
     Active Substance: CLOPIDOGREL BISULFATE
     Dosage: TABLET
  18. FENOFIBRATE [Concomitant]
     Active Substance: FENOFIBRATE
     Dosage: TABLET
  19. FUROSEMIDE [Concomitant]
     Active Substance: FUROSEMIDE
     Dosage: TABLET

REACTIONS (7)
  - Swelling [Not Recovered/Not Resolved]
  - Blister [Not Recovered/Not Resolved]
  - Feeling abnormal [Not Recovered/Not Resolved]
  - Dyspnoea [Not Recovered/Not Resolved]
  - Nausea [Not Recovered/Not Resolved]
  - Underdose [Unknown]
  - Off label use [Unknown]

NARRATIVE: CASE EVENT DATE: 20210818
